FAERS Safety Report 17419823 (Version 2)
Quarter: 2020Q1

REPORT INFORMATION
  Report Type: Spontaneous
  Country: US (occurrence: US)
  Receive Date: 20200214
  Receipt Date: 20200325
  Transmission Date: 20200409
  Serious: Yes (Hospitalization, Other)
  Sender: FDA-Public Use
  Company Number: US-SHIRE-US202004779

PATIENT
  Sex: Male

DRUGS (1)
  1. CARBATROL [Suspect]
     Active Substance: CARBAMAZEPINE
     Indication: PRODUCT USED FOR UNKNOWN INDICATION
     Dosage: PER DAY
     Route: 065

REACTIONS (8)
  - Nausea [Unknown]
  - Aggression [Unknown]
  - Product physical issue [Unknown]
  - Toxicity to various agents [Unknown]
  - Epilepsy [Unknown]
  - Dysstasia [Unknown]
  - Ill-defined disorder [Unknown]
  - Diplopia [Unknown]

NARRATIVE: CASE EVENT DATE: 20200126
